FAERS Safety Report 5372252-5 (Version None)
Quarter: 2007Q2

REPORT INFORMATION
  Report Type: 
  Country: None (occurrence: None)
  Receive Date: 20070618
  Receipt Date: 20070430
  Transmission Date: 20071010
  Serious: Yes (Other)
  Sender: FDA-Public Use
  Company Number: 07-039

PATIENT
  Age: 44 Year
  Sex: Female
  Weight: 61.2356 kg

DRUGS (1)
  1. ALEVE [Suspect]
     Indication: PAIN IN EXTREMITY
     Dosage: 440 MG, DAILY, ORAL
     Route: 048

REACTIONS (2)
  - ANAL HAEMORRHAGE [None]
  - HAEMATOCHEZIA [None]
